FAERS Safety Report 14852618 (Version 1)
Quarter: 2018Q2

REPORT INFORMATION
  Report Type: Spontaneous
  Country: JP (occurrence: JP)
  Receive Date: 20180507
  Receipt Date: 20180507
  Transmission Date: 20180711
  Serious: Yes (Hospitalization)
  Sender: FDA-Public Use
  Company Number: JP-NOVOPROD-597272

PATIENT
  Sex: Male

DRUGS (1)
  1. NOVOLIN N [Suspect]
     Active Substance: INSULIN HUMAN
     Indication: DIABETES MELLITUS
     Dosage: BY INJECTION IN THE MORNING AND EVENING
     Route: 058

REACTIONS (3)
  - Insomnia [Unknown]
  - Fracture [Unknown]
  - Blood glucose increased [Unknown]
